FAERS Safety Report 5672325-3 (Version None)
Quarter: 2008Q1

REPORT INFORMATION
  Report Type: 
  Country: None (occurrence: None)
  Receive Date: 20080318
  Receipt Date: 20080318
  Transmission Date: 20080703
  Serious: No
  Sender: FDA-Public Use
  Company Number: None

PATIENT
  Age: 49 Year
  Sex: Male
  Weight: 132 kg

DRUGS (2)
  1. ARIPIPRAZOLE [Suspect]
     Indication: ANXIETY
     Dosage: 10MG EVERY DAY PO
     Route: 048
     Dates: start: 20080228, end: 20080311
  2. ARIPIPRAZOLE [Suspect]
     Indication: DEPRESSION
     Dosage: 10MG EVERY DAY PO
     Route: 048
     Dates: start: 20080228, end: 20080311

REACTIONS (1)
  - RASH PRURITIC [None]
